FAERS Safety Report 5194521-4 (Version None)
Quarter: 2006Q4

REPORT INFORMATION
  Report Type: 
  Country: None (occurrence: None)
  Receive Date: 20061222
  Receipt Date: 20061219
  Transmission Date: 20070319
  Serious: Yes (Life-Threatening)
  Sender: FDA-Public Use
  Company Number: 2006S1000088

PATIENT
  Age: 2 Day
  Sex: Female

DRUGS (9)
  1. NITRIC OXIDE [Suspect]
     Indication: LUNG DISORDER
     Dosage: 5 PPM; INH_GAS; INH; CONT INH
     Route: 055
     Dates: start: 20060501, end: 20060515
  2. NITRIC OXIDE [Suspect]
     Indication: PROPHYLAXIS
     Dosage: 5 PPM; INH_GAS; INH; CONT INH
     Route: 055
     Dates: start: 20060501, end: 20060515
  3. DOPAMINE HCL [Concomitant]
  4. FENTANYL [Concomitant]
  5. AMPICILLIN [Concomitant]
  6. GENTAMICIN [Concomitant]
  7. DOBUTAMINE (DOBUTAMINE) [Concomitant]
  8. EPINEPHRINE [Concomitant]
  9. IBUPROFEN [Concomitant]

REACTIONS (1)
  - INTRAVENTRICULAR HAEMORRHAGE NEONATAL [None]
